FAERS Safety Report 5630677-4 (Version None)
Quarter: 2008Q1

REPORT INFORMATION
  Report Type: 
  Country: None (occurrence: None)
  Receive Date: 20080219
  Receipt Date: 20080212
  Transmission Date: 20080703
  Serious: Yes (Hospitalization)
  Sender: FDA-Public Use
  Company Number: JP-MERCK-0802USA03524

PATIENT
  Age: 74 Year
  Sex: Female

DRUGS (9)
  1. PEPCID RPD [Suspect]
     Route: 048
     Dates: start: 20080108, end: 20080125
  2. LIPITOR [Suspect]
     Route: 048
     Dates: start: 20080108, end: 20080125
  3. ASPIRIN [Concomitant]
     Route: 048
     Dates: start: 20080108, end: 20080125
  4. ARTIST [Concomitant]
     Route: 048
     Dates: start: 20080108, end: 20080125
  5. PLETAL [Concomitant]
     Route: 048
     Dates: start: 20080108, end: 20080110
  6. DAMSEL [Concomitant]
     Route: 048
  7. VOGLIBOSE [Concomitant]
     Route: 048
  8. NEUROVITAN [Suspect]
     Route: 048
  9. PANALDINE [Suspect]
     Route: 048
     Dates: start: 20080108, end: 20080125

REACTIONS (1)
  - LUNG DISORDER [None]
